FAERS Safety Report 7742149-1 (Version None)
Quarter: 2011Q3

REPORT INFORMATION
  Report Type: 
  Country: None (occurrence: None)
  Receive Date: 20110912
  Receipt Date: 20110907
  Transmission Date: 20111222
  Serious: Yes (Death, Other)
  Sender: FDA-Public Use
  Company Number: PHHY2011DE79766

PATIENT
  Sex: Male

DRUGS (6)
  1. TRAMADOL HYDROCHLORIDE [Concomitant]
     Indication: PAIN
     Dosage: 200 MG, DAILY
     Route: 048
     Dates: start: 20110611
  2. ZOMETA [Suspect]
     Dosage: 4 MG PER 5 ML
     Route: 042
     Dates: start: 20110730
  3. ZOMETA [Suspect]
     Indication: METASTASES TO BONE
     Dosage: 4 MG PER 5 ML
     Route: 042
     Dates: start: 20110409
  4. DOXORUBICIN HCL [Concomitant]
     Dosage: 45 MG, DAILY
     Route: 042
     Dates: start: 20110823, end: 20110823
  5. DOXORUBICIN HCL [Concomitant]
     Indication: BONE SARCOMA
     Dosage: 46.5 MG/ DAY 1,2,3,Q22
     Route: 042
     Dates: start: 20110503, end: 20110728
  6. MORPHINE SULFATE [Concomitant]
     Dosage: 30 MG, DAILY
     Route: 048
     Dates: start: 20110823

REACTIONS (2)
  - GENERAL PHYSICAL HEALTH DETERIORATION [None]
  - DEATH [None]
